FAERS Safety Report 24744450 (Version 1)
Quarter: 2024Q4

REPORT INFORMATION
  Report Type: Spontaneous
  Country: SE (occurrence: SE)
  Receive Date: 20241217
  Receipt Date: 20241217
  Transmission Date: 20250115
  Serious: Yes (Other)
  Sender: AMGEN
  Company Number: SE-AMGEN-SWESP2024244987

PATIENT

DRUGS (12)
  1. XGEVA [Suspect]
     Active Substance: DENOSUMAB
     Indication: Metastases to bone
     Dosage: 120 MILLIGRAM, QMO
     Route: 058
  2. XGEVA [Suspect]
     Active Substance: DENOSUMAB
     Indication: Breast cancer
  3. XGEVA [Suspect]
     Active Substance: DENOSUMAB
     Indication: Renal cancer
  4. XGEVA [Suspect]
     Active Substance: DENOSUMAB
     Indication: Prostate cancer
  5. XGEVA [Suspect]
     Active Substance: DENOSUMAB
     Indication: Lung neoplasm malignant
  6. XGEVA [Suspect]
     Active Substance: DENOSUMAB
     Indication: Bladder cancer
  7. XGEVA [Suspect]
     Active Substance: DENOSUMAB
     Indication: Colorectal cancer
  8. XGEVA [Suspect]
     Active Substance: DENOSUMAB
     Indication: Hepatic cancer
  9. XGEVA [Suspect]
     Active Substance: DENOSUMAB
     Indication: Malignant melanoma
  10. XGEVA [Suspect]
     Active Substance: DENOSUMAB
     Indication: Endometrial cancer
  11. XGEVA [Suspect]
     Active Substance: DENOSUMAB
     Indication: Oesophageal carcinoma
  12. XGEVA [Suspect]
     Active Substance: DENOSUMAB
     Indication: Thyroid cancer

REACTIONS (1)
  - Pathological fracture [Unknown]
